FAERS Safety Report 5366262-1 (Version None)
Quarter: 2007Q2

REPORT INFORMATION
  Report Type: 
  Country: None (occurrence: None)
  Receive Date: 20070619
  Receipt Date: 20070619
  Transmission Date: 20071010
  Serious: Yes (Hospitalization)
  Sender: FDA-Public Use
  Company Number: None

PATIENT
  Age: 54 Year
  Sex: Male
  Weight: 100 kg

DRUGS (2)
  1. RIBAVIRIN [Suspect]
     Indication: HEPATITIS C VIRUS
     Dosage: 600MG/800MG QAM/QPM PO
     Route: 048
     Dates: start: 20070102, end: 20070420
  2. INTERFERON [Suspect]
     Indication: HEPATITIS C VIRUS
     Dosage: 180MCG Q7D SQ
     Route: 058
     Dates: start: 20070102, end: 20070420

REACTIONS (4)
  - ANAEMIA [None]
  - DIZZINESS EXERTIONAL [None]
  - FALL [None]
  - SYNCOPE [None]
